FAERS Safety Report 7339411-3 (Version None)
Quarter: 2011Q1

REPORT INFORMATION
  Report Type: 
  Country: None (occurrence: None)
  Receive Date: 20110308
  Receipt Date: 20101209
  Transmission Date: 20110831
  Serious: No
  Sender: FDA-Public Use
  Company Number: US-AMGEN-USASP2010006761

PATIENT
  Age: 76 Year
  Sex: Female

DRUGS (2)
  1. PROLIA [Suspect]
     Indication: OSTEOPOROSIS POSTMENOPAUSAL
     Dosage: 60 MG, Q6MO
     Dates: start: 20101110
  2. SYNTHROID [Concomitant]

REACTIONS (2)
  - MUSCLE SPASMS [None]
  - PAIN IN EXTREMITY [None]
